FAERS Safety Report 5171049-9 (Version None)
Quarter: 2006Q4

REPORT INFORMATION
  Report Type: 
  Country: None (occurrence: None)
  Receive Date: 20061213
  Receipt Date: 20061108
  Transmission Date: 20070319
  Serious: No
  Sender: FDA-Public Use
  Company Number: US-GLAXOSMITHKLINE-A0626761A

PATIENT
  Age: 25 Year
  Sex: Male
  Weight: 50.5 kg

DRUGS (1)
  1. TRIZIVIR [Suspect]
     Indication: HIV INFECTION
     Route: 048
     Dates: start: 20061004, end: 20061012

REACTIONS (3)
  - COUGH [None]
  - NAUSEA [None]
  - PYREXIA [None]
